FAERS Safety Report 8764723 (Version 3)
Quarter: 2012Q4

REPORT INFORMATION
  Report Type: 
  Country: JP (occurrence: JP)
  Receive Date: 20120831
  Receipt Date: 20120921
  Transmission Date: 20130627
  Serious: Yes (Hospitalization)
  Sender: FDA-Public Use
  Company Number: JP-ABBOTT-12P-087-0975350-00

PATIENT
  Age: 62 Year
  Sex: Male
  Weight: 62.9 kg

DRUGS (3)
  1. CLARITHROMYCIN [Suspect]
     Indication: DIFFUSE PANBRONCHIOLITIS
  2. CLARITHROMYCIN [Suspect]
  3. ERYTHROMYCIN [Suspect]
     Indication: DIFFUSE PANBRONCHIOLITIS

REACTIONS (3)
  - Pneumothorax [Recovering/Resolving]
  - Drug ineffective [Recovering/Resolving]
  - No therapeutic response [Recovering/Resolving]
